FAERS Safety Report 13550451 (Version 1)
Quarter: 2017Q2

REPORT INFORMATION
  Report Type: Spontaneous
  Country: US (occurrence: US)
  Receive Date: 20170516
  Receipt Date: 20170516
  Transmission Date: 20170830
  Serious: Yes (Hospitalization)
  Sender: FDA-Public Use
  Company Number: None

PATIENT
  Age: 60 Year
  Sex: Male
  Weight: 65.7 kg

DRUGS (14)
  1. TEGRETOL [Suspect]
     Active Substance: CARBAMAZEPINE
     Indication: TRIGEMINAL NEURALGIA
     Dosage: DATES OF USE - CHRONIC
     Route: 048
  2. REMERON [Concomitant]
     Active Substance: MIRTAZAPINE
  3. EFFEXOR XR [Suspect]
     Active Substance: VENLAFAXINE HYDROCHLORIDE
  4. NEURONTIN [Suspect]
     Active Substance: GABAPENTIN
  5. APAP [Concomitant]
     Active Substance: ACETAMINOPHEN
  6. LYRICA [Suspect]
     Active Substance: PREGABALIN
  7. MELATONIN [Concomitant]
     Active Substance: MELATONIN
  8. COLACE [Concomitant]
     Active Substance: DOCUSATE SODIUM
  9. FLOMAX [Concomitant]
     Active Substance: TAMSULOSIN HYDROCHLORIDE
  10. FORTESTA [Concomitant]
     Active Substance: TESTOSTERONE
  11. FLONASE [Concomitant]
     Active Substance: FLUTICASONE PROPIONATE
  12. PHENERGAN [Concomitant]
     Active Substance: PROMETHAZINE HYDROCHLORIDE
  13. ZOFRAN [Suspect]
     Active Substance: ONDANSETRON HYDROCHLORIDE
  14. RESTORIL [Concomitant]
     Active Substance: TEMAZEPAM

REACTIONS (2)
  - Serotonin syndrome [None]
  - Hyperpyrexia [None]

NARRATIVE: CASE EVENT DATE: 20170127
